FAERS Safety Report 13810621 (Version 1)
Quarter: 2017Q3

REPORT INFORMATION
  Report Type: Spontaneous
  Country: US (occurrence: US)
  Receive Date: 20170728
  Receipt Date: 20170728
  Transmission Date: 20171127
  Serious: No
  Sender: FDA-Public Use
  Company Number: US-AMGEN-USASP2017081592

PATIENT
  Sex: Male

DRUGS (4)
  1. EZETIMIBE. [Concomitant]
     Active Substance: EZETIMIBE
     Dosage: 10 MG, UNK
  2. FLUTICASON [Concomitant]
     Active Substance: FLUTICASONE
     Dosage: 50 MUG, UNK
  3. REPATHA [Suspect]
     Active Substance: EVOLOCUMAB
     Indication: PRODUCT USED FOR UNKNOWN INDICATION
     Dosage: 140 MG/ML, Q2WK
     Route: 058
  4. BUTRANS [Concomitant]
     Active Substance: BUPRENORPHINE
     Dosage: 5 MUG, UNK

REACTIONS (1)
  - Nausea [Not Recovered/Not Resolved]
